FAERS Safety Report 5325729-2 (Version None)
Quarter: 2007Q2

REPORT INFORMATION
  Report Type: 
  Country: None (occurrence: None)
  Receive Date: 20070509
  Receipt Date: 20070423
  Transmission Date: 20071010
  Serious: Yes (Other)
  Sender: FDA-Public Use
  Company Number: VER_00055_2007

PATIENT
  Sex: Female

DRUGS (4)
  1. EPINEPHRINE [Suspect]
     Indication: FOOD ALLERGY
     Dosage: (0.3 MG PRN INTRAMUSCULAR)
     Route: 030
     Dates: start: 20070420
  2. EPINEPHRINE [Suspect]
     Indication: HYPERSENSITIVITY
     Dosage: (0.3 MG PRN INTRAMUSCULAR)
     Route: 030
     Dates: start: 20070420
  3. EPINEPHRINE [Suspect]
  4. OTHER ANTI-ASTHMATICS [Concomitant]

REACTIONS (3)
  - ANAPHYLACTIC REACTION [None]
  - DEVICE MALFUNCTION [None]
  - PHARMACEUTICAL PRODUCT COMPLAINT [None]
